FAERS Safety Report 5724431-2 (Version None)
Quarter: 2008Q2

REPORT INFORMATION
  Report Type: 
  Country: None (occurrence: None)
  Receive Date: 20080428
  Receipt Date: 20080416
  Transmission Date: 20081010
  Serious: Yes (Other)
  Sender: FDA-Public Use
  Company Number: CHNY2008JP01745

PATIENT
  Age: 74 Year
  Sex: Female

DRUGS (4)
  1. SENNOSIDE UNKNOWN MANUFACTURER (NCH)(SENNA GLYCOSIDES( CA SALTS OF PUR [Suspect]
  2. ACETYLSALICYLIC ACID SRT [Concomitant]
  3. FAMOTIDINE [Concomitant]
  4. ALFACALCIDOL (ALFACALCIDOL) [Concomitant]

REACTIONS (4)
  - ACUTE GENERALISED EXANTHEMATOUS PUSTULOSIS [None]
  - ERYTHEMA [None]
  - LYMPHOCYTE STIMULATION TEST POSITIVE [None]
  - RASH PUSTULAR [None]
